FAERS Safety Report 17373050 (Version 3)
Quarter: 2020Q2

REPORT INFORMATION
  Report Type: Report from Study
  Country: MX (occurrence: MX)
  Receive Date: 20200205
  Receipt Date: 20200508
  Transmission Date: 20200713
  Serious: No
  Sender: FDA-Public Use
  Company Number: NVSC2020MX023478

PATIENT
  Sex: Female
  Weight: 91 kg

DRUGS (5)
  1. ENTRESTO [Suspect]
     Active Substance: SACUBITRIL\VALSARTAN
     Dosage: 2 DF, QD (START DATE WAS APPROX. 5 MONTHS AGO)
     Route: 048
  2. ENTRESTO [Suspect]
     Active Substance: SACUBITRIL\VALSARTAN
     Indication: CARDIAC DISORDER
     Dosage: 1 DF, BID (100MG)
     Route: 048
  3. XARELTO [Concomitant]
     Active Substance: RIVAROXABAN
     Indication: BLOOD PRESSURE MEASUREMENT
     Dosage: 20 MG
     Route: 048
     Dates: start: 201908
  4. INSULIN [Concomitant]
     Active Substance: INSULIN NOS
     Indication: DIABETES MELLITUS
     Dosage: UNK
     Route: 065
  5. ENTRESTO [Suspect]
     Active Substance: SACUBITRIL\VALSARTAN
     Dosage: 100 MG, BID
     Route: 048
     Dates: start: 201908

REACTIONS (6)
  - Hypertension [Unknown]
  - Blood pressure abnormal [Unknown]
  - Product use in unapproved indication [Unknown]
  - Condition aggravated [Recovering/Resolving]
  - Product prescribing error [Unknown]
  - Malaise [Not Recovered/Not Resolved]
